FAERS Safety Report 8008553-1 (Version None)
Quarter: 2011Q4

REPORT INFORMATION
  Report Type: 
  Country: None (occurrence: None)
  Receive Date: 20111222
  Receipt Date: 20111222
  Transmission Date: 20120403
  Serious: Yes (Hospitalization)
  Sender: FDA-Public Use
  Company Number: None

PATIENT
  Sex: Female
  Weight: 63.6 kg

DRUGS (1)
  1. OXCARBAZEPINE [Suspect]
     Indication: CONVULSION
     Dosage: 600 MG 3 DAILY PO
     Route: 048
     Dates: start: 20111029, end: 20111126

REACTIONS (3)
  - POOR QUALITY DRUG ADMINISTERED [None]
  - EPILEPSY [None]
  - MEDICATION ERROR [None]
